FAERS Safety Report 24413419 (Version 1)
Quarter: 2024Q4

REPORT INFORMATION
  Report Type: Spontaneous
  Country: FR (occurrence: FR)
  Receive Date: 20241008
  Receipt Date: 20241008
  Transmission Date: 20250114
  Serious: Yes (Life-Threatening, Hospitalization)
  Sender: PERRIGO
  Company Number: FR-MLMSERVICE-20240924-PI199926-00029-1

PATIENT
  Age: 77 Year
  Sex: Female

DRUGS (7)
  1. ACETAMINOPHEN [Suspect]
     Active Substance: ACETAMINOPHEN
     Indication: Arthralgia
     Dosage: UNKNOWN, UNKNOWN
     Route: 048
  2. FLUCLOXACILLIN [Suspect]
     Active Substance: FLUCLOXACILLIN
     Indication: Staphylococcal infection
     Dosage: 12 G PER DAY DIVIDED INTO 6 DOSES
     Route: 065
  3. OXYCODONE [Concomitant]
     Active Substance: OXYCODONE
     Indication: Arthralgia
     Dosage: UNKNOWN, UNKNOWN
     Route: 065
  4. AMOXICILLIN\CLAVULANIC ACID [Concomitant]
     Active Substance: AMOXICILLIN\CLAVULANIC ACID
     Indication: Evidence based treatment
     Dosage: UNKNOWN, UNKNOWN
     Route: 065
  5. AMOXICILLIN\CLAVULANIC ACID [Concomitant]
     Active Substance: AMOXICILLIN\CLAVULANIC ACID
     Indication: Antibiotic therapy
  6. PIPERACILLIN AND TAZOBACTAM [Concomitant]
     Active Substance: PIPERACILLIN SODIUM\TAZOBACTAM SODIUM
     Indication: Antibiotic therapy
     Dosage: UNKNOWN, UNKNOWN
     Route: 065
  7. PIPERACILLIN AND TAZOBACTAM [Concomitant]
     Active Substance: PIPERACILLIN SODIUM\TAZOBACTAM SODIUM
     Indication: Evidence based treatment

REACTIONS (2)
  - Renal failure [Recovering/Resolving]
  - Pyroglutamic acidosis [Recovering/Resolving]
